FAERS Safety Report 6105487-4 (Version None)
Quarter: 2009Q1

REPORT INFORMATION
  Report Type: 
  Country: None (occurrence: None)
  Receive Date: 20090306
  Receipt Date: 20090227
  Transmission Date: 20090719
  Serious: Yes (Hospitalization)
  Sender: FDA-Public Use
  Company Number: A0771638A

PATIENT
  Age: 58 Year
  Sex: Male
  Weight: 113.6 kg

DRUGS (15)
  1. AVANDIA [Suspect]
     Indication: DIABETES MELLITUS
     Dosage: 8MG PER DAY
     Route: 048
     Dates: start: 20000919, end: 20070826
  2. VIAGRA [Concomitant]
  3. GABAPENTIN [Concomitant]
  4. NEXIUM [Concomitant]
  5. PREVACID [Concomitant]
  6. ACCUPRIL [Concomitant]
  7. ACTOS [Concomitant]
  8. METFORMIN [Concomitant]
  9. GLUCOTROL XL [Concomitant]
  10. HYDROCHLOROTHIAZIDE [Concomitant]
  11. LIPITOR [Concomitant]
  12. RISPERDAL [Concomitant]
  13. OXYCONTIN [Concomitant]
  14. LISINOPRIL [Concomitant]
  15. LOTREL [Concomitant]

REACTIONS (1)
  - CEREBROVASCULAR ACCIDENT [None]
